FAERS Safety Report 20564508 (Version 5)
Quarter: 2023Q2

REPORT INFORMATION
  Report Type: Spontaneous
  Country: US (occurrence: US)
  Receive Date: 20220308
  Receipt Date: 20230420
  Transmission Date: 20230721
  Serious: Yes (Disabling, Other)
  Sender: FDA-Public Use
  Company Number: US-ORGANON-O2203USA000560

PATIENT
  Sex: Female

DRUGS (3)
  1. SINGULAIR [Suspect]
     Active Substance: MONTELUKAST SODIUM
     Dosage: 10 MILLIGRAM
     Route: 048
     Dates: start: 2006, end: 2012
  2. SINGULAIR [Suspect]
     Active Substance: MONTELUKAST SODIUM
     Dosage: 10 MILLIGRAM
     Route: 048
     Dates: start: 2006, end: 2012
  3. MONTELUKAST SODIUM [Suspect]
     Active Substance: MONTELUKAST SODIUM
     Dosage: UNK

REACTIONS (30)
  - Neuropsychiatric symptoms [Not Recovered/Not Resolved]
  - Post-traumatic stress disorder [Unknown]
  - Intentional self-injury [Unknown]
  - Major depression [Not Recovered/Not Resolved]
  - Suicidal ideation [Unknown]
  - Colitis microscopic [Unknown]
  - Suicide attempt [Unknown]
  - Suicide attempt [Unknown]
  - Suicide attempt [Unknown]
  - Suicide attempt [Unknown]
  - Rectal haemorrhage [Unknown]
  - Self-injurious ideation [Unknown]
  - Gastrooesophageal reflux disease [Unknown]
  - Haemorrhoids [Unknown]
  - Gallbladder disorder [Unknown]
  - COVID-19 [Recovered/Resolved]
  - COVID-19 [Unknown]
  - Cardiac murmur [Unknown]
  - Asthma [Unknown]
  - Chest pain [Unknown]
  - Chronic fatigue syndrome [Unknown]
  - Bacterial vaginosis [Not Recovered/Not Resolved]
  - Scoliosis [Unknown]
  - Carpal tunnel syndrome [Unknown]
  - Seasonal allergy [Unknown]
  - Adjustment disorder [Unknown]
  - Oesophagitis [Unknown]
  - Insomnia [Unknown]
  - Product use issue [Unknown]
  - Product prescribing issue [Unknown]

NARRATIVE: CASE EVENT DATE: 20060101
